FAERS Safety Report 5597722-6 (Version None)
Quarter: 2008Q1

REPORT INFORMATION
  Report Type: 
  Country: None (occurrence: None)
  Receive Date: 20080121
  Receipt Date: 20080111
  Transmission Date: 20080703
  Serious: Yes (Other)
  Sender: FDA-Public Use
  Company Number: US-ELI_LILLY_AND_COMPANY-US200801002262

PATIENT
  Sex: Female
  Weight: 58.05 kg

DRUGS (8)
  1. BYETTA [Suspect]
     Dosage: 5 UG, 2/D
     Route: 058
     Dates: start: 20050101, end: 20050101
  2. BYETTA [Suspect]
     Dosage: 10 UG, 2/D
     Route: 058
     Dates: start: 20050101, end: 20080109
  3. BYETTA [Suspect]
     Dosage: 10 UG, 2/D
     Route: 058
     Dates: start: 20080110
  4. LIPITOR [Concomitant]
     Dosage: UNK, UNKNOWN
  5. TRICOR [Concomitant]
     Dosage: UNK, UNKNOWN
  6. ZETIA [Concomitant]
     Dosage: UNK, UNKNOWN
  7. ATENOLOL [Concomitant]
     Dosage: UNK, UNKNOWN
  8. NITRO-BID [Concomitant]
     Dosage: UNK, UNKNOWN

REACTIONS (1)
  - BREAST CANCER [None]
